FAERS Safety Report 9337744 (Version 2)
Quarter: 2013Q4

REPORT INFORMATION
  Report Type: Spontaneous
  Country: JP (occurrence: JP)
  Receive Date: 20130607
  Receipt Date: 20131024
  Transmission Date: 20140711
  Serious: Yes (Life-Threatening, Other)
  Sender: FDA-Public Use
  Company Number: JP-ASTRAZENECA-2013SE40154

PATIENT
  Age: 91 Year
  Sex: Male
  Weight: 61 kg

DRUGS (7)
  1. ZOLADEX LA [Suspect]
     Indication: PROSTATE CANCER
     Route: 058
     Dates: start: 20040712, end: 20060712
  2. ZOLADEX LA [Suspect]
     Indication: PROSTATE CANCER
     Route: 058
     Dates: start: 20060712, end: 20130319
  3. CASODEX TABLET [Concomitant]
     Indication: PROSTATE CANCER
     Route: 048
     Dates: start: 20040712, end: 20090708
  4. DIOVAN [Concomitant]
     Route: 048
  5. NORVASC OD [Concomitant]
     Route: 048
  6. HARNAL D [Concomitant]
     Route: 065
  7. DAIKENCHUTO [Concomitant]
     Route: 065

REACTIONS (3)
  - Atrial fibrillation [Recovered/Resolved with Sequelae]
  - Cardiac failure congestive [Recovered/Resolved with Sequelae]
  - Atrioventricular block first degree [Unknown]
